FAERS Safety Report 15539514 (Version 2)
Quarter: 2019Q1

REPORT INFORMATION
  Report Type: Spontaneous
  Country: US (occurrence: US)
  Receive Date: 20181023
  Receipt Date: 20190101
  Transmission Date: 20190417
  Serious: Yes (Hospitalization)
  Sender: FDA-Public Use
  Company Number: US-BIOGEN-2018BI00648483

PATIENT
  Sex: Female

DRUGS (1)
  1. AVONEX [Suspect]
     Active Substance: INTERFERON BETA-1A
     Indication: MULTIPLE SCLEROSIS
     Route: 065

REACTIONS (7)
  - Skin discolouration [Unknown]
  - Livedo reticularis [Unknown]
  - Skin atrophy [Unknown]
  - Influenza like illness [Unknown]
  - Pain of skin [Unknown]
  - Tremor [Unknown]
  - Skin induration [Unknown]
